FAERS Safety Report 6839254-0 (Version None)
Quarter: 2010Q3

REPORT INFORMATION
  Report Type: 
  Country: None (occurrence: None)
  Receive Date: 20100714
  Receipt Date: 20091228
  Transmission Date: 20110219
  Serious: No
  Sender: FDA-Public Use
  Company Number: US-KINGPHARMUSA00001-K200901632

PATIENT
  Age: 46 Year
  Sex: Female

DRUGS (1)
  1. BICILLIN L-A [Suspect]
     Dosage: UNK
     Dates: start: 20080101

REACTIONS (4)
  - INJECTION SITE VESICLES [None]
  - MALAISE [None]
  - OESOPHAGEAL PAIN [None]
  - VOMITING [None]
